FAERS Safety Report 9632446 (Version 3)
Quarter: 2014Q1

REPORT INFORMATION
  Report Type: Report from Study
  Country: FR (occurrence: FR)
  Receive Date: 20131018
  Receipt Date: 20140207
  Transmission Date: 20141002
  Serious: Yes (Other)
  Sender: FDA-Public Use
  Company Number: FR-UCBSA-100066

PATIENT
  Age: 77 Year
  Sex: Male
  Weight: 77 kg

DRUGS (9)
  1. CIMZIA [Suspect]
     Indication: RHEUMATOID ARTHRITIS
     Dosage: UNKNOKWN DOSE
     Route: 058
     Dates: end: 20130922
  2. UVEDOSE [Concomitant]
     Dates: start: 20120606
  3. EFFERALGAN [Concomitant]
     Indication: RHEUMATOID ARTHRITIS
     Route: 048
     Dates: start: 2000
  4. OMEPRAZOLE [Concomitant]
     Indication: RHEUMATOID ARTHRITIS
     Route: 048
     Dates: start: 2000
  5. LODOZ [Concomitant]
     Indication: HYPERTENSION
     Route: 048
     Dates: start: 1998
  6. PRAVASTATINE [Concomitant]
     Indication: HYPERCHOLESTEROLAEMIA
     Route: 048
     Dates: start: 2001
  7. CITALOPRAM [Concomitant]
     Indication: ANXIETY
     Dates: start: 2000
  8. ALPRAZOLAM [Concomitant]
     Indication: ANXIETY
     Dates: start: 2000
  9. METFORMINE [Concomitant]
     Indication: DIABETES MELLITUS
     Dates: start: 20130201

REACTIONS (1)
  - Lung infection [Recovered/Resolved]
